FAERS Safety Report 15907720 (Version 3)
Quarter: 2019Q2

REPORT INFORMATION
  Report Type: Spontaneous
  Country: IT (occurrence: IT)
  Receive Date: 20190204
  Receipt Date: 20190530
  Transmission Date: 20190711
  Serious: Yes (Hospitalization, Other)
  Sender: FDA-Public Use
  Company Number: IT-PFIZER INC-2019049721

PATIENT
  Age: 72 Year
  Sex: Female

DRUGS (5)
  1. CORDARONE [Suspect]
     Active Substance: AMIODARONE HYDROCHLORIDE
     Indication: ATRIAL FIBRILLATION
     Dosage: 4 GRAMS AT TOTAL
     Route: 065
     Dates: start: 20181025, end: 20181025
  2. EUTIROX [Concomitant]
     Active Substance: LEVOTHYROXINE SODIUM
     Dosage: 100 UG, UNK
     Dates: start: 20180101
  3. RIVOTRIL [Suspect]
     Active Substance: CLONAZEPAM
     Dosage: 10 ML AT TOTAL
     Route: 048
     Dates: start: 20181025, end: 20181025
  4. LYRICA [Concomitant]
     Active Substance: PREGABALIN
     Dosage: 75 MG, UNK
     Dates: start: 20180101
  5. PEPTAZOL [LANSOPRAZOLE] [Concomitant]
     Active Substance: LANSOPRAZOLE
     Dosage: 20 MG, UNK
     Dates: start: 20180101

REACTIONS (4)
  - Intentional self-injury [Recovered/Resolved]
  - Sopor [Recovered/Resolved]
  - Drug abuse [Unknown]
  - Intentional overdose [Recovered/Resolved]

NARRATIVE: CASE EVENT DATE: 20181025
